FAERS Safety Report 6783711-2 (Version None)
Quarter: 2010Q2

REPORT INFORMATION
  Report Type: 
  Country: None (occurrence: None)
  Receive Date: 20100622
  Receipt Date: 20100611
  Transmission Date: 20101027
  Serious: Yes (Other)
  Sender: FDA-Public Use
  Company Number: GB-ROCHE-709895

PATIENT

DRUGS (3)
  1. HERCEPTIN [Suspect]
     Route: 064
  2. DIGOXIN [Suspect]
     Indication: EJECTION FRACTION DECREASED
     Route: 064
  3. EPIRUBICIN [Suspect]
     Route: 064

REACTIONS (2)
  - LIVE BIRTH [None]
  - TACHYPNOEA [None]
